FAERS Safety Report 18342049 (Version 1)
Quarter: 2020Q4

REPORT INFORMATION
  Report Type: Spontaneous
  Country: US (occurrence: US)
  Receive Date: 20201005
  Receipt Date: 20201005
  Transmission Date: 20210113
  Serious: Yes (Other)
  Sender: FDA-Public Use
  Company Number: US-GW PHARMA-202009USGW03311

PATIENT

DRUGS (1)
  1. EPIDIOLEX [Suspect]
     Active Substance: CANNABIDIOL
     Indication: PRODUCT USED FOR UNKNOWN INDICATION
     Dosage: 750 MILLIGRAM, BID (FIRST SHIPPED ON 31 OCT 2019)
     Route: 048
     Dates: start: 2019

REACTIONS (5)
  - Hyperhidrosis [Unknown]
  - Abnormal behaviour [Unknown]
  - Rash pruritic [Unknown]
  - Seizure [Not Recovered/Not Resolved]
  - Agitation [Unknown]
